FAERS Safety Report 12440112 (Version 1)
Quarter: 2016Q2

REPORT INFORMATION
  Report Type: Spontaneous
  Country: US (occurrence: US)
  Receive Date: 20160606
  Receipt Date: 20160606
  Transmission Date: 20160815
  Serious: No
  Sender: FDA-Public Use
  Company Number: US-AMGEN-USASP2015091504

PATIENT

DRUGS (2)
  1. RITUXIMAB [Concomitant]
     Active Substance: RITUXIMAB
     Indication: NEOPLASM MALIGNANT
     Dosage: UNK
  2. EPOGEN [Suspect]
     Active Substance: ERYTHROPOIETIN
     Indication: NEOPLASM MALIGNANT
     Dosage: UNK
     Route: 065

REACTIONS (1)
  - Off label use [Unknown]
